FAERS Safety Report 8807521 (Version 1)
Quarter: 2012Q4

REPORT INFORMATION
  Report Type: 
  Country: VE (occurrence: VE)
  Receive Date: 20120925
  Receipt Date: 20120925
  Transmission Date: 20130627
  Serious: Yes (Other)
  Sender: FDA-Public Use
  Company Number: VE-PFIZER INC-2012206106

PATIENT
  Age: 59 Year
  Sex: Female

DRUGS (1)
  1. LIPITOR [Suspect]
     Indication: HYPERCHOLESTEROLAEMIA
     Dosage: 80 mg, 1x/day
     Route: 048
     Dates: start: 20120620, end: 201207

REACTIONS (2)
  - Hypertension [Not Recovered/Not Resolved]
  - Generalised oedema [Recovered/Resolved]
